FAERS Safety Report 8829864 (Version 2)
Quarter: 2012Q4

REPORT INFORMATION
  Report Type: Report from Study
  Country: ES (occurrence: ES)
  Receive Date: 20121008
  Receipt Date: 20121120
  Transmission Date: 20130627
  Serious: Yes (Death, Hospitalization)
  Sender: FDA-Public Use
  Company Number: ES-ROCHE-1140007

PATIENT
  Age: 75 Year
  Sex: Male
  Weight: 78 kg

DRUGS (11)
  1. BEVACIZUMAB [Suspect]
     Indication: COLORECTAL CANCER
     Dosage: cycle 2, last dose received prior to AE onset 7.5 mg/kg on 03/Sep/2012
     Route: 042
     Dates: start: 20120813, end: 20120918
  2. CAPECITABINE [Suspect]
     Indication: COLORECTAL CANCER
     Dosage: last dose received prior to AE onset 1000mg/m2 on 03/Sep/2012
     Route: 048
     Dates: start: 20120813, end: 20120918
  3. OXALIPLATIN [Suspect]
     Indication: COLORECTAL CANCER
     Dosage: last dose received prior to AE onset 130 mcg/m2 on 03/Sep/2012
     Route: 042
     Dates: start: 20120813, end: 20120918
  4. OMEPRAZOLE [Concomitant]
     Route: 048
  5. TORASEMIDA [Concomitant]
     Indication: HYPERTENSION
     Route: 048
  6. DAFLON (SPAIN) [Concomitant]
     Route: 048
  7. DEPAKINE [Concomitant]
     Route: 048
  8. ADIRO [Concomitant]
     Route: 048
  9. SERETIDE [Concomitant]
     Route: 050
  10. OMNIC [Concomitant]
     Route: 048
  11. LOVASTATIN [Concomitant]
     Route: 048

REACTIONS (1)
  - Palmar-plantar erythrodysaesthesia syndrome [Fatal]
